FAERS Safety Report 4510346-4 (Version None)
Quarter: 2004Q4

REPORT INFORMATION
  Report Type: 
  Country: None (occurrence: None)
  Receive Date: 20041122
  Receipt Date: 20041111
  Transmission Date: 20050328
  Serious: Yes (Hospitalization, Other)
  Sender: FDA-Public Use
  Company Number: HQWYE472505JUN03

PATIENT
  Age: 59 Year
  Sex: Male
  Weight: 80.36 kg

DRUGS (19)
  1. MYLOTARG [Suspect]
     Indication: ACUTE MYELOID LEUKAEMIA
     Dosage: 9 MG/M^2 1X PER 1 DAY, INTRAVENOUS
     Route: 042
     Dates: start: 20030106, end: 20030106
  2. MYLOTARG [Suspect]
     Indication: ACUTE MYELOID LEUKAEMIA
     Dosage: 9 MG/M^2 1X PER 1 DAY, INTRAVENOUS
     Route: 042
     Dates: start: 20030120, end: 20030120
  3. POTASSIUM CHLORIDE [Concomitant]
  4. CLINDAMYCIN (CLINDAMYCIN) [Concomitant]
  5. ACYCLOVIR [Concomitant]
  6. CIPRO [Concomitant]
  7. ALLOPURINOL [Concomitant]
  8. DIFLUCAN [Concomitant]
  9. FOLIC ACID [Concomitant]
  10. HEPARIN [Concomitant]
  11. INSULIN [Concomitant]
  12. MULTIVITAMINS, PLAIN (MULTIVITAMINS, PLAIN) [Concomitant]
  13. LASIX [Concomitant]
  14. MAGNESIUM SULFATE [Concomitant]
  15. AMBIEN [Concomitant]
  16. DARVON [Concomitant]
  17. ZOFRAN [Concomitant]
  18. SODIUM BICARBONATE IN PLASTIC CONTAINER [Concomitant]
  19. ATIVAN [Concomitant]

REACTIONS (5)
  - HAEMATOCRIT DECREASED [None]
  - HAEMOGLOBIN DECREASED [None]
  - NEUTROPENIA [None]
  - PLATELET COUNT DECREASED [None]
  - PYREXIA [None]
